FAERS Safety Report 7117905-3 (Version None)
Quarter: 2010Q4

REPORT INFORMATION
  Report Type: 
  Country: None (occurrence: None)
  Receive Date: 20101118
  Receipt Date: 20101118
  Transmission Date: 20110411
  Serious: Yes (Other)
  Sender: FDA-Public Use
  Company Number: None

PATIENT
  Age: 58 Year
  Sex: Female
  Weight: 52.1637 kg

DRUGS (5)
  1. AMOXICILLIN [Suspect]
     Indication: HEPATITIS A
     Dosage: 1 CAP 3 X DAILY PO
     Route: 048
     Dates: start: 20101105, end: 20101107
  2. AMOXICILLIN [Suspect]
     Indication: HEPATITIS B
     Dosage: 1 CAP 3 X DAILY PO
     Route: 048
     Dates: start: 20101105, end: 20101107
  3. AMOXICILLIN [Suspect]
     Indication: HEPATITIS C
     Dosage: 1 CAP 3 X DAILY PO
     Route: 048
     Dates: start: 20101105, end: 20101107
  4. AMOXICILLIN [Suspect]
     Indication: VIRAL INFECTION
     Dosage: 1 CAP 3 X DAILY PO
     Route: 048
     Dates: start: 20101105, end: 20101107
  5. AMOXICILLIN [Concomitant]
     Dosage: 500 MG CAP S

REACTIONS (3)
  - INSOMNIA [None]
  - MUSCLE SPASMS [None]
  - PAIN IN EXTREMITY [None]
